FAERS Safety Report 21032785 (Version 2)
Quarter: 2022Q3

REPORT INFORMATION
  Report Type: Spontaneous
  Country: JP (occurrence: JP)
  Receive Date: 20220701
  Receipt Date: 20220927
  Transmission Date: 20221027
  Serious: Yes (Hospitalization, Other)
  Sender: FDA-Public Use
  Company Number: JP-009507513-2206JPN008531

PATIENT
  Age: 67 Year
  Sex: Male

DRUGS (2)
  1. KEYTRUDA [Suspect]
     Active Substance: PEMBROLIZUMAB
     Indication: Non-small cell lung cancer
     Dosage: 200 MG, ONCE EVERY 3 WEEKS
     Route: 042
     Dates: start: 20181005, end: 20181005
  2. KEYTRUDA [Suspect]
     Active Substance: PEMBROLIZUMAB
     Indication: Lung adenocarcinoma stage IV

REACTIONS (5)
  - Meningitis aseptic [Recovered/Resolved]
  - Immune-mediated hepatitis [Recovered/Resolved]
  - Immune-mediated thyroiditis [Not Recovered/Not Resolved]
  - Dysgeusia [Not Recovered/Not Resolved]
  - Gynaecomastia [Unknown]

NARRATIVE: CASE EVENT DATE: 20181018
